FAERS Safety Report 18622195 (Version 1)
Quarter: 2020Q4

REPORT INFORMATION
  Report Type: Spontaneous
  Country: US (occurrence: US)
  Receive Date: 20201216
  Receipt Date: 20201216
  Transmission Date: 20210114
  Serious: Yes (Death, Other)
  Sender: FDA-Public Use
  Company Number: US-ASTELLAS-2020US044280

PATIENT
  Age: 55 Year
  Sex: Male

DRUGS (9)
  1. ISAVUCONAZOLE [Concomitant]
     Active Substance: ISAVUCONAZOLE
     Route: 042
  2. AMPHOTERICIN B DEOXYCHOLATE [Concomitant]
     Active Substance: AMPHOTERICIN B
     Indication: PRODUCT USED FOR UNKNOWN INDICATION
     Dosage: 0.5 MG IN 1ML OF D5 EVERY 48 H
     Route: 037
  3. AMBISOME [Suspect]
     Active Substance: AMPHOTERICIN B
     Route: 042
  4. VANCOMYCIN [Concomitant]
     Active Substance: VANCOMYCIN
     Indication: PRODUCT USED FOR UNKNOWN INDICATION
     Dosage: UNK UNK, UNKNOWN FREQ.
     Route: 042
  5. CEFEPIME [Concomitant]
     Active Substance: CEFEPIME HYDROCHLORIDE
     Indication: PRODUCT USED FOR UNKNOWN INDICATION
     Dosage: UNK UNK, UNKNOWN FREQ.
     Route: 042
  6. AMBISOME [Suspect]
     Active Substance: AMPHOTERICIN B
     Indication: BRAIN ABSCESS
     Route: 042
  7. AMPHOTERICIN B DEOXYCHOLATE [Concomitant]
     Active Substance: AMPHOTERICIN B
     Dosage: 100 MCG IN D5 EVERY 48 H
     Route: 065
  8. METRONIDAZOLE. [Concomitant]
     Active Substance: METRONIDAZOLE
     Indication: PRODUCT USED FOR UNKNOWN INDICATION
     Dosage: UNK UNK, UNKNOWN FREQ.
     Route: 042
  9. ISAVUCONAZOLE [Concomitant]
     Active Substance: ISAVUCONAZOLE
     Indication: PRODUCT USED FOR UNKNOWN INDICATION
     Dosage: 372 MG, EVERY 8 HOURS FOR 6 DOSES
     Route: 042

REACTIONS (2)
  - Off label use [Recovered/Resolved]
  - Drug ineffective [Fatal]
